FAERS Safety Report 10632232 (Version 1)
Quarter: 2014Q4

REPORT INFORMATION
  Report Type: Spontaneous
  Country: US (occurrence: US)
  Receive Date: 20141205
  Receipt Date: 20141205
  Transmission Date: 20150529
  Serious: No
  Sender: FDA-Public Use
  Company Number: US-BRISTOL-MYERS SQUIBB COMPANY-21603345

PATIENT
  Age: 43 Year
  Sex: Female

DRUGS (3)
  1. ABILIFY [Suspect]
     Active Substance: ARIPIPRAZOLE
  2. ABILIFY MAINTENA [Suspect]
     Active Substance: ARIPIPRAZOLE
  3. LATUDA [Concomitant]
     Active Substance: LURASIDONE HYDROCHLORIDE

REACTIONS (7)
  - Headache [Unknown]
  - Dizziness [Unknown]
  - Cardiac disorder [Unknown]
  - Weight increased [Unknown]
  - Asthenia [Unknown]
  - Hypoaesthesia [Unknown]
  - Somnolence [Unknown]

NARRATIVE: CASE EVENT DATE: 20141112
